APPROVED DRUG PRODUCT: VIZAMYL
Active Ingredient: FLUTEMETAMOL F-18
Strength: 121.5mCi/30ML (4.05mCi/ML)
Dosage Form/Route: INJECTABLE;INTRAVENOUS
Application: N203137 | Product #002
Applicant: GE HEALTHCARE
Approved: Oct 25, 2013 | RLD: Yes | RS: Yes | Type: RX

PATENTS:
Patent 8916131 | Expires: Sep 16, 2028